FAERS Safety Report 4647379-3 (Version None)
Quarter: 2005Q2

REPORT INFORMATION
  Report Type: 
  Country: None (occurrence: None)
  Receive Date: 20050428
  Receipt Date: 20050415
  Transmission Date: 20051028
  Serious: Yes (Other)
  Sender: FDA-Public Use
  Company Number: GB-JNJFOC-20050403888

PATIENT
  Sex: Male

DRUGS (1)
  1. REMICADE [Suspect]
     Indication: PSORIASIS
     Dosage: 2 INFUSIONS
     Route: 042

REACTIONS (4)
  - ANXIETY [None]
  - DIZZINESS [None]
  - INFUSION RELATED REACTION [None]
  - PALPITATIONS [None]
